FAERS Safety Report 8128402-0 (Version None)
Quarter: 2012Q1

REPORT INFORMATION
  Report Type: 
  Country: None (occurrence: None)
  Receive Date: 20120210
  Receipt Date: 20120202
  Transmission Date: 20120608
  Serious: Yes (Other)
  Sender: FDA-Public Use
  Company Number: US-PFIZER INC-2011071056

PATIENT
  Sex: Female

DRUGS (2)
  1. CELEBREX [Suspect]
     Indication: PAIN
     Dosage: UNK, 2X/DAY
  2. CELEBREX [Suspect]
     Indication: NEURALGIA

REACTIONS (4)
  - KNEE ARTHROPLASTY [None]
  - MALAISE [None]
  - SURGERY [None]
  - DISCOMFORT [None]
